FAERS Safety Report 19445255 (Version 1)
Quarter: 2021Q2

REPORT INFORMATION
  Report Type: Report from Study
  Country: US (occurrence: US)
  Receive Date: 20210622
  Receipt Date: 20210622
  Transmission Date: 20210717
  Serious: Yes (Death)
  Sender: FDA-Public Use
  Company Number: US-TAIHO ONCOLOGY  INC-EU-2021-01931

PATIENT
  Age: 40 Year
  Sex: Male
  Weight: 88.53 kg

DRUGS (18)
  1. MELATONIN [Concomitant]
     Active Substance: MELATONIN
  2. TESTOSTERONE CYPIONATE. [Concomitant]
     Active Substance: TESTOSTERONE CYPIONATE
  3. VITAMIN D3 [Concomitant]
     Active Substance: CHOLECALCIFEROL
  4. LIOTHYRONINE SODIUM. [Concomitant]
     Active Substance: LIOTHYRONINE SODIUM
  5. METFORMIN [Concomitant]
     Active Substance: METFORMIN HYDROCHLORIDE
  6. LOPERAMIDE [Concomitant]
     Active Substance: LOPERAMIDE
  7. TAGAMET [Concomitant]
     Active Substance: CIMETIDINE
  8. PROPRANOLOL [Concomitant]
     Active Substance: PROPRANOLOL HYDROCHLORIDE
  9. ELIQUIS [Concomitant]
     Active Substance: APIXABAN
  10. FENTANYL. [Concomitant]
     Active Substance: FENTANYL
  11. METOPROLOL TARTRATE. [Concomitant]
     Active Substance: METOPROLOL TARTRATE
  12. DISULFIRAM. [Concomitant]
     Active Substance: DISULFIRAM
  13. CELECOXIB. [Concomitant]
     Active Substance: CELECOXIB
  14. FISH OIL [Concomitant]
     Active Substance: FISH OIL
  15. RIDAURA [Concomitant]
     Active Substance: AURANOFIN
  16. OXYCODONE [Concomitant]
     Active Substance: OXYCODONE
  17. PENTOXYFYLLINE [Concomitant]
     Active Substance: PENTOXIFYLLINE
  18. LONSURF [Suspect]
     Active Substance: TIPIRACIL HYDROCHLORIDE\TRIFLURIDINE
     Indication: COLORECTAL CANCER METASTATIC
     Dosage: CYCLE UNKNOWN
     Route: 048
     Dates: start: 20210508

REACTIONS (1)
  - Death [Fatal]

NARRATIVE: CASE EVENT DATE: 20210615
